FAERS Safety Report 5261945-6 (Version None)
Quarter: 2007Q1

REPORT INFORMATION
  Report Type: 
  Country: None (occurrence: None)
  Receive Date: 20070308
  Receipt Date: 20070227
  Transmission Date: 20070707
  Serious: Yes (Other)
  Sender: FDA-Public Use
  Company Number: SPV1-2007-00775

PATIENT
  Age: 11 Year
  Sex: Male
  Weight: 38.1 kg

DRUGS (1)
  1. DAYTRANA [Suspect]
     Indication: ATTENTION DEFICIT/HYPERACTIVITY DISORDER
     Dosage: 10 MG, TRANSDERMAL
     Route: 062
     Dates: start: 20061101

REACTIONS (6)
  - ABNORMAL BEHAVIOUR [None]
  - DEPRESSION [None]
  - DRUG INEFFECTIVE [None]
  - EDUCATIONAL PROBLEM [None]
  - PHARMACEUTICAL PRODUCT COMPLAINT [None]
  - SUICIDAL IDEATION [None]
